FAERS Safety Report 6896684-9 (Version None)
Quarter: 2010Q3

REPORT INFORMATION
  Report Type: 
  Country: None (occurrence: None)
  Receive Date: 20100802
  Receipt Date: 20070201
  Transmission Date: 20110219
  Serious: Yes (Other)
  Sender: FDA-Public Use
  Company Number: US-PFIZER INC-2007002931

PATIENT
  Sex: Female
  Weight: 52.2 kg

DRUGS (9)
  1. LYRICA [Suspect]
     Indication: POST HERPETIC NEURALGIA
     Route: 048
  2. ALTACE [Concomitant]
     Route: 048
  3. DIGOXIN [Concomitant]
     Route: 048
  4. COREG [Concomitant]
     Route: 048
  5. LIPITOR [Concomitant]
     Route: 048
  6. WARFARIN SODIUM [Concomitant]
     Route: 048
  7. MULTI-VITAMINS [Concomitant]
     Route: 048
  8. IBANDRONATE SODIUM [Concomitant]
     Route: 048
  9. CALCIUM [Concomitant]
     Route: 048

REACTIONS (6)
  - DIZZINESS [None]
  - FATIGUE [None]
  - HEADACHE [None]
  - MUSCULAR WEAKNESS [None]
  - PAIN [None]
  - SYNCOPE [None]
